FAERS Safety Report 7982622-4 (Version None)
Quarter: 2011Q4

REPORT INFORMATION
  Report Type: 
  Country: None (occurrence: None)
  Receive Date: 20111215
  Receipt Date: 20111208
  Transmission Date: 20120403
  Serious: Yes (Other)
  Sender: FDA-Public Use
  Company Number: JP-GLAXOSMITHKLINE-B0768719A

PATIENT
  Age: 2 Decade
  Sex: Male

DRUGS (2)
  1. PREDNISOLONE [Concomitant]
     Indication: COLITIS ULCERATIVE
     Dosage: 60MG PER DAY
     Route: 048
  2. FLUNASE (JAPAN) [Suspect]
     Indication: RHINITIS ALLERGIC
     Route: 045
     Dates: start: 20110901

REACTIONS (2)
  - NASAL DISCOMFORT [None]
  - NASAL SEPTUM PERFORATION [None]
